FAERS Safety Report 12823038 (Version 5)
Quarter: 2018Q1

REPORT INFORMATION
  Report Type: Report from Study
  Country: GR (occurrence: GR)
  Receive Date: 20161007
  Receipt Date: 20180201
  Transmission Date: 20180508
  Serious: Yes (Other)
  Sender: FDA-Public Use
  Company Number: PHHY2016GR131927

PATIENT
  Age: 67 Year
  Sex: Male

DRUGS (11)
  1. TALOSIN [Concomitant]
     Indication: NERVOUS SYSTEM DISORDER
     Dosage: 20 MG, UNK
     Route: 065
     Dates: start: 20150121
  2. ANGORON [Concomitant]
     Active Substance: AMIODARONE HYDROCHLORIDE
     Indication: ATRIAL FIBRILLATION
     Dosage: 200 MG, UNK
     Route: 065
     Dates: start: 2001, end: 201608
  3. SALOSPIR [Concomitant]
     Active Substance: ASPIRIN
     Indication: CORONARY ARTERY DISEASE
     Dosage: 100 MG, UNK
     Route: 065
     Dates: end: 201608
  4. PENRAZOL [Concomitant]
     Indication: GASTRIC DISORDER
     Dosage: UNK
     Route: 065
     Dates: start: 20150914
  5. TORVASTIN [Concomitant]
     Indication: CORONARY ARTERY DISEASE
     Dosage: 20 MG, UNK
     Route: 065
     Dates: start: 20140604
  6. LOPRESSOR [Concomitant]
     Active Substance: METOPROLOL TARTRATE
     Indication: ATRIAL FIBRILLATION
     Dosage: 100 MG, UNK
     Route: 065
     Dates: start: 2001
  7. ELIQUIS [Concomitant]
     Active Substance: APIXABAN
     Indication: ATRIAL FIBRILLATION
     Dosage: 2.5 MG, UNK
     Route: 065
     Dates: start: 201608
  8. LOPRESSOR [Concomitant]
     Active Substance: METOPROLOL TARTRATE
     Indication: CORONARY ARTERY DISEASE
     Dosage: 100 MG, UNK
     Route: 065
     Dates: start: 201608
  9. LASIX [Concomitant]
     Active Substance: FUROSEMIDE
     Indication: CORONARY ARTERY DISEASE
     Dosage: 40 MG, UNK
     Route: 065
     Dates: start: 20150112
  10. EXELON [Concomitant]
     Active Substance: RIVASTIGMINE TARTRATE
     Indication: NERVOUS SYSTEM DISORDER
     Dosage: 13.3 MG, UNK (TTS)
     Route: 065
     Dates: start: 20140604
  11. TASIGNA [Suspect]
     Active Substance: NILOTINIB
     Indication: CHRONIC MYELOID LEUKAEMIA
     Dosage: 600 MG, UNK
     Route: 048
     Dates: start: 20140626

REACTIONS (3)
  - Chest pain [Recovered/Resolved]
  - Chest discomfort [Recovering/Resolving]
  - Atrial fibrillation [Recovering/Resolving]

NARRATIVE: CASE EVENT DATE: 20160615
